FAERS Safety Report 7606060-9 (Version None)
Quarter: 2011Q3

REPORT INFORMATION
  Report Type: 
  Country: None (occurrence: None)
  Receive Date: 20110713
  Receipt Date: 20110705
  Transmission Date: 20111222
  Serious: Yes (Other)
  Sender: FDA-Public Use
  Company Number: US-ELI_LILLY_AND_COMPANY-US201107001376

PATIENT
  Age: 55 Year
  Sex: Male

DRUGS (2)
  1. HUMAN INSULIN [Suspect]
  2. HUMALOG [Suspect]

REACTIONS (1)
  - LOSS OF CONSCIOUSNESS [None]
